FAERS Safety Report 11114110 (Version 4)
Quarter: 2015Q3

REPORT INFORMATION
  Report Type: Spontaneous
  Country: US (occurrence: US)
  Receive Date: 20150514
  Receipt Date: 20150716
  Transmission Date: 20151125
  Serious: Yes (Other)
  Sender: FDA-Public Use
  Company Number: US-PFIZER INC-2015158274

PATIENT
  Age: 29 Year
  Sex: Male
  Weight: 91 kg

DRUGS (1)
  1. XYNTHA [Suspect]
     Active Substance: ANTIHEMOPHILIC FACTOR, HUMAN RECOMBINANT RESIDUES 743-1636 DELETED
     Indication: FACTOR VIII DEFICIENCY
     Dosage: 2000 IU, AS NEEDED
     Route: 042
     Dates: start: 201311

REACTIONS (4)
  - Gait disturbance [Unknown]
  - Haemorrhage [Unknown]
  - Fracture [Unknown]
  - Injury [Unknown]

NARRATIVE: CASE EVENT DATE: 201505
